FAERS Safety Report 24735376 (Version 4)
Quarter: 2025Q2

REPORT INFORMATION
  Report Type: Report from Study
  Country: US (occurrence: US)
  Receive Date: 20241215
  Receipt Date: 20250409
  Transmission Date: 20250717
  Serious: No
  Sender: SUNOVION
  Company Number: US-SUMITOMO PHARMA SWITZERLAND GMBH-2024SPA005679

PATIENT

DRUGS (23)
  1. ORGOVYX [Suspect]
     Active Substance: RELUGOLIX
     Indication: Prostate cancer
     Dosage: 360 MG, SINGLE
     Route: 048
     Dates: start: 20241121, end: 20241121
  2. ORGOVYX [Suspect]
     Active Substance: RELUGOLIX
     Dosage: 120 MG, QD
     Route: 048
     Dates: start: 20241122
  3. ATORVASTATIN [Concomitant]
     Active Substance: ATORVASTATIN
     Route: 065
  4. FAMOTIDINE [Concomitant]
     Active Substance: FAMOTIDINE
     Route: 065
  5. GLIPIZIDE [Concomitant]
     Active Substance: GLIPIZIDE
     Route: 065
  6. JARDIANCE [Concomitant]
     Active Substance: EMPAGLIFLOZIN
     Route: 065
  7. LOSARTAN [Concomitant]
     Active Substance: LOSARTAN
     Route: 065
  8. METFORMIN [Concomitant]
     Active Substance: METFORMIN HYDROCHLORIDE
     Route: 065
  9. SILDENAFIL [Concomitant]
     Active Substance: SILDENAFIL
     Route: 065
  10. TADALAFIL [Concomitant]
     Active Substance: TADALAFIL
     Route: 065
  11. INSULIN GLARGINE [Concomitant]
     Active Substance: INSULIN GLARGINE
     Route: 065
  12. Quercetin with bromelain + zinc + vitamin c + vitamin d3 [Concomitant]
     Route: 065
  13. HERBALS\TURMERIC [Concomitant]
     Active Substance: HERBALS\TURMERIC
     Route: 065
  14. VITAMIN D3 [Concomitant]
     Active Substance: CHOLECALCIFEROL
     Route: 065
  15. ZINC [Concomitant]
     Active Substance: ZINC
     Route: 065
  16. Beenos [Concomitant]
     Route: 065
  17. CHARCOAL [Concomitant]
     Active Substance: ACTIVATED CHARCOAL
     Route: 065
  18. BENADRYL [Concomitant]
     Active Substance: DIPHENHYDRAMINE HYDROCHLORIDE
     Route: 065
  19. CHROMIUM PICOLINATE [Concomitant]
     Active Substance: CHROMIUM PICOLINATE
     Route: 065
  20. Allergy relief [Concomitant]
     Route: 065
  21. FLONASE [Concomitant]
     Active Substance: FLUTICASONE PROPIONATE
     Route: 065
  22. MAGNESIUM [Concomitant]
     Active Substance: MAGNESIUM
     Route: 065
  23. VITAMIN E [Concomitant]
     Active Substance: .ALPHA.-TOCOPHEROL
     Route: 065

REACTIONS (7)
  - Flatulence [Unknown]
  - Muscle spasms [Unknown]
  - Dry mouth [Unknown]
  - Blood glucose decreased [Unknown]
  - Feeling abnormal [Unknown]
  - Asthenia [Unknown]
  - Diarrhoea [Unknown]

NARRATIVE: CASE EVENT DATE: 20241121
